FAERS Safety Report 9276516 (Version 1)
Quarter: 2013Q2

REPORT INFORMATION
  Report Type: Spontaneous
  Country: FR (occurrence: FR)
  Receive Date: 20130507
  Receipt Date: 20130507
  Transmission Date: 20140414
  Serious: Yes (Other)
  Sender: FDA-Public Use
  Company Number: FR-BRISTOL-MYERS SQUIBB COMPANY-18837310

PATIENT
  Age: 63 Year
  Sex: Male

DRUGS (1)
  1. HYDREA CAPS 500 MG [Suspect]
     Route: 048

REACTIONS (3)
  - Ileal ulcer [Recovered/Resolved]
  - Melaena [Recovered/Resolved]
  - Anaemia [Recovered/Resolved]
